APPROVED DRUG PRODUCT: RENOVA
Active Ingredient: TRETINOIN
Strength: 0.05% **Federal Register determination that product was not discontinued or withdrawn for safety or effectiveness reasons**
Dosage Form/Route: CREAM;TOPICAL
Application: N019963 | Product #001
Applicant: VALEANT PHARMACEUTICALS NORTH AMERICA LLC
Approved: Dec 29, 1995 | RLD: Yes | RS: No | Type: DISCN